FAERS Safety Report 20905871 (Version 1)
Quarter: 2022Q2

REPORT INFORMATION
  Report Type: Spontaneous
  Country: JP (occurrence: JP)
  Receive Date: 20220602
  Receipt Date: 20220602
  Transmission Date: 20220721
  Serious: Yes (Other)
  Sender: FDA-Public Use
  Company Number: JP-MPKK-JPN202200475_P_1

PATIENT
  Sex: Female

DRUGS (2)
  1. NORSPAN [Suspect]
     Active Substance: BUPRENORPHINE
     Indication: Intervertebral disc protrusion
     Dosage: 10 MICROGRAM, Q1H [STRENGTH 10 MILLIGRAMS]
     Route: 062
     Dates: start: 202205
  2. NORSPAN [Suspect]
     Active Substance: BUPRENORPHINE
     Dosage: 5 MICROGRAM, Q1H [STRENGTH 5 MILLIGRAMS]
     Route: 062

REACTIONS (1)
  - Renal impairment [Unknown]
